FAERS Safety Report 6824962-8 (Version None)
Quarter: 2010Q3

REPORT INFORMATION
  Report Type: 
  Country: None (occurrence: None)
  Receive Date: 20100708
  Receipt Date: 20061121
  Transmission Date: 20110219
  Serious: No
  Sender: FDA-Public Use
  Company Number: US-PFIZER INC-2006147671

PATIENT
  Sex: Male
  Weight: 79.38 kg

DRUGS (11)
  1. CHANTIX [Suspect]
     Indication: SMOKING CESSATION THERAPY
     Dates: start: 20060101
  2. SEROQUEL [Concomitant]
     Indication: DEPRESSION
     Route: 048
  3. TRAZODONE [Concomitant]
     Indication: DEPRESSION
     Route: 048
  4. AMBIEN [Concomitant]
     Indication: INSOMNIA
     Route: 048
  5. EFFEXOR XR [Concomitant]
     Route: 048
  6. LYRICA [Concomitant]
     Route: 048
  7. ALL OTHER THERAPEUTIC PRODUCTS [Concomitant]
     Route: 048
  8. OXYCONTIN [Concomitant]
     Route: 048
  9. XANAX [Concomitant]
     Indication: ANXIETY
     Route: 048
  10. STADOL [Concomitant]
  11. TAMSULOSIN HYDROCHLORIDE [Concomitant]
     Indication: PROSTATOMEGALY
     Route: 048

REACTIONS (2)
  - DIZZINESS [None]
  - NAUSEA [None]
